FAERS Safety Report 13237866 (Version 2)
Quarter: 2017Q1

REPORT INFORMATION
  Report Type: Report from Study
  Country: None (occurrence: US)
  Receive Date: 20170216
  Receipt Date: 20170331
  Transmission Date: 20170428
  Serious: Yes (Hospitalization, Other)
  Sender: FDA-Public Use
  Company Number: US-ABBVIE-17K-163-1870692-00

PATIENT
  Age: 42 Year
  Sex: Female

DRUGS (11)
  1. IMURAN [Concomitant]
     Active Substance: AZATHIOPRINE
     Indication: PRODUCT USED FOR UNKNOWN INDICATION
  2. SODIUM BICARBONATE. [Concomitant]
     Active Substance: SODIUM BICARBONATE
     Indication: PRODUCT USED FOR UNKNOWN INDICATION
  3. HUMIRA [Suspect]
     Active Substance: ADALIMUMAB
     Route: 058
     Dates: start: 201702
  4. FOLIC ACID. [Concomitant]
     Active Substance: FOLIC ACID
     Indication: PRODUCT USED FOR UNKNOWN INDICATION
  5. HUMIRA [Suspect]
     Active Substance: ADALIMUMAB
     Indication: CROHN^S DISEASE
     Route: 058
     Dates: start: 2012, end: 201610
  6. MAGNESIUM [Concomitant]
     Active Substance: MAGNESIUM
     Indication: PRODUCT USED FOR UNKNOWN INDICATION
  7. TORADOL [Concomitant]
     Active Substance: KETOROLAC TROMETHAMINE
     Indication: PRODUCT USED FOR UNKNOWN INDICATION
  8. NICODERM CQ [Concomitant]
     Active Substance: NICOTINE
     Indication: PRODUCT USED FOR UNKNOWN INDICATION
  9. IRON [Concomitant]
     Active Substance: IRON
     Indication: PRODUCT USED FOR UNKNOWN INDICATION
  10. POTASSIUM [Concomitant]
     Active Substance: POTASSIUM
     Indication: PRODUCT USED FOR UNKNOWN INDICATION
  11. NORCO [Concomitant]
     Active Substance: ACETAMINOPHEN\HYDROCODONE BITARTRATE
     Indication: PRODUCT USED FOR UNKNOWN INDICATION

REACTIONS (28)
  - Bile duct obstruction [Unknown]
  - Unresponsive to stimuli [Recovered/Resolved]
  - Volvulus [Recovered/Resolved]
  - Heart rate increased [Unknown]
  - Post procedural complication [Unknown]
  - Chest pain [Unknown]
  - Staphylococcal infection [Unknown]
  - Stomal hernia [Recovered/Resolved]
  - Gastrointestinal inflammation [Not Recovered/Not Resolved]
  - Abdominal pain [Recovered/Resolved]
  - Pleural effusion [Recovered/Resolved]
  - Hepatic enzyme increased [Unknown]
  - Short-bowel syndrome [Unknown]
  - Pneumonia [Recovered/Resolved]
  - Heart rate decreased [Recovered/Resolved]
  - Acute kidney injury [Recovered/Resolved]
  - Post procedural sepsis [Unknown]
  - Clostridium difficile infection [Unknown]
  - Hypotension [Recovered/Resolved]
  - Throat tightness [Recovered/Resolved]
  - Renal impairment [Not Recovered/Not Resolved]
  - Malnutrition [Unknown]
  - Postoperative respiratory distress [Recovered/Resolved]
  - Stoma site inflammation [Unknown]
  - Arthralgia [Not Recovered/Not Resolved]
  - Rales [Recovered/Resolved]
  - White blood cell count increased [Recovered/Resolved]
  - Pancreatitis [Recovering/Resolving]

NARRATIVE: CASE EVENT DATE: 2015
